FAERS Safety Report 14201841 (Version 2)
Quarter: 2017Q4

REPORT INFORMATION
  Report Type: Spontaneous
  Country: DK (occurrence: DK)
  Receive Date: 20171117
  Receipt Date: 20171127
  Transmission Date: 20180321
  Serious: Yes (Other)
  Sender: FDA-Public Use
  Company Number: DK-SA-2017SA215740

PATIENT
  Sex: Male

DRUGS (3)
  1. NOVORAPID [Concomitant]
     Active Substance: INSULIN ASPART
     Dosage: USED VERY SELDOM
  2. SOLOSTAR [Suspect]
     Active Substance: DEVICE
     Indication: LATENT AUTOIMMUNE DIABETES IN ADULTS
     Dates: start: 201705
  3. TOUJEO [Suspect]
     Active Substance: INSULIN GLARGINE
     Indication: LATENT AUTOIMMUNE DIABETES IN ADULTS
     Dosage: DOSE:50 UNIT(S)
     Route: 051
     Dates: start: 201705

REACTIONS (7)
  - Pain in extremity [Unknown]
  - Salivary hypersecretion [Recovered/Resolved]
  - Joint stiffness [Unknown]
  - Fatigue [Recovered/Resolved]
  - Hypoglycaemia [Recovered/Resolved]
  - Blood glucose increased [Unknown]
  - Unresponsive to stimuli [Unknown]

NARRATIVE: CASE EVENT DATE: 2017
